FAERS Safety Report 5728517-8 (Version None)
Quarter: 2008Q2

REPORT INFORMATION
  Report Type: 
  Country: None (occurrence: None)
  Receive Date: 20080430
  Receipt Date: 20080417
  Transmission Date: 20081010
  Serious: Yes (Death)
  Sender: FDA-Public Use
  Company Number: S08-FRA-01520-01

PATIENT
  Age: 87 Year
  Sex: Male

DRUGS (5)
  1. MEMANTINE HCL [Suspect]
     Indication: DEMENTIA
     Dosage: 20 MG QD PO
     Route: 048
     Dates: start: 20080305, end: 20080324
  2. STABLON (TIANEPTINE) [Concomitant]
  3. EQUANIL [Concomitant]
  4. BRICANYL [Concomitant]
  5. PULMICORT [Concomitant]

REACTIONS (2)
  - AGITATION [None]
  - PULMONARY EMBOLISM [None]
